FAERS Safety Report 4362669-X (Version None)
Quarter: 2004Q2

REPORT INFORMATION
  Report Type: 
  Country: None (occurrence: None)
  Receive Date: 20040517
  Receipt Date: 20040505
  Transmission Date: 20050107
  Serious: Yes (Hospitalization)
  Sender: FDA-Public Use
  Company Number: 2004212585FR

PATIENT
  Age: 89 Year
  Sex: Female
  Weight: 58 kg

DRUGS (6)
  1. CELEBREX [Suspect]
     Dosage: 1 DF, QD, ORAL
     Route: 048
  2. DIGOXIN [Suspect]
     Dosage: 1 DF, QD, ORAL
     Route: 048
  3. APROVEL(IRBESARTAN) [Suspect]
     Dosage: 150 MG, QD, ORAL
     Route: 048
  4. LASIX [Suspect]
     Dosage: 40 MG, QD, ORAL
     Route: 048
  5. PREVISCAN (FLUINDIONE) [Concomitant]
  6. TRAMADOL HCL [Concomitant]

REACTIONS (9)
  - AORTIC STENOSIS [None]
  - ATRIOVENTRICULAR BLOCK [None]
  - BRADYCARDIA [None]
  - CARDIOACTIVE DRUG LEVEL INCREASED [None]
  - DEHYDRATION [None]
  - GENERAL PHYSICAL HEALTH DETERIORATION [None]
  - INTERNATIONAL NORMALISED RATIO INCREASED [None]
  - OVERDOSE [None]
  - RENAL FAILURE [None]
